FAERS Safety Report 14328472 (Version 1)
Quarter: 2017Q4

REPORT INFORMATION
  Report Type: Spontaneous
  Country: CH (occurrence: CH)
  Receive Date: 20171227
  Receipt Date: 20171227
  Transmission Date: 20180321
  Serious: Yes (Hospitalization)
  Sender: FDA-Public Use
  Company Number: CH-GLAXOSMITHKLINE-CH2017195849

PATIENT
  Age: 59 Year
  Sex: Male

DRUGS (6)
  1. LAMICTAL [Suspect]
     Active Substance: LAMOTRIGINE
     Dosage: 350 MG BID DOSE INCREASE OF LAMOTRIGINE 175 - 0 - 175 MG WITH LOW LEVEL OF LAMOTRIGINE 2.2 MG / L O
     Route: 065
     Dates: start: 20171204
  2. LAMICTAL [Suspect]
     Active Substance: LAMOTRIGINE
     Indication: PRODUCT USED FOR UNKNOWN INDICATION
     Dosage: 250 MG, BID DOSE INCREASE OF LAMOTRIGINE 175 - 0 - 175 MG WITH LOW LEVEL OF LAMOTRIGINE 2.2 MG / L O
     Route: 065
     Dates: start: 201704
  3. REYATAZ [Suspect]
     Active Substance: ATAZANAVIR SULFATE
     Indication: PRODUCT USED FOR UNKNOWN INDICATION
     Dosage: 200 MG, QD
  4. 3TC [Concomitant]
     Active Substance: LAMIVUDINE
     Indication: PRODUCT USED FOR UNKNOWN INDICATION
     Dosage: 300 MG, QD
  5. VIREAD [Concomitant]
     Active Substance: TENOFOVIR DISOPROXIL FUMARATE
     Indication: PRODUCT USED FOR UNKNOWN INDICATION
     Dosage: 245 MG, QD
     Route: 065
  6. KEPPRA [Suspect]
     Active Substance: LEVETIRACETAM
     Indication: PRODUCT USED FOR UNKNOWN INDICATION
     Dosage: 500 MG, BID
     Dates: start: 201704

REACTIONS (2)
  - Gait disturbance [Recovering/Resolving]
  - Balance disorder [Recovered/Resolved]

NARRATIVE: CASE EVENT DATE: 201711
